FAERS Safety Report 11055069 (Version 1)
Quarter: 2015Q2

REPORT INFORMATION
  Report Type: Spontaneous
  Country: US (occurrence: None)
  Receive Date: 20150421
  Receipt Date: 20150421
  Transmission Date: 20150821
  Serious: Yes (Life-Threatening)
  Sender: FDA-Public Use
  Company Number: None

PATIENT
  Age: 80 Year
  Sex: Female
  Weight: 65.77 kg

DRUGS (2)
  1. CELEBREX [Concomitant]
     Active Substance: CELECOXIB
  2. TOLTERODINE TART ER 4 MG CAPSULES MYLAN [Suspect]
     Active Substance: TOLTERODINE
     Indication: URINARY INCONTINENCE
     Dosage: 30 CAPSULES, BY MOUTH
     Route: 048
     Dates: start: 20150206, end: 20150218

REACTIONS (2)
  - International normalised ratio increased [None]
  - Prothrombin time prolonged [None]

NARRATIVE: CASE EVENT DATE: 20150218
